FAERS Safety Report 6132558-9 (Version None)
Quarter: 2009Q1

REPORT INFORMATION
  Report Type: 
  Country: None (occurrence: None)
  Receive Date: 20090324
  Receipt Date: 20090311
  Transmission Date: 20090719
  Serious: Yes (Other)
  Sender: FDA-Public Use
  Company Number: CIP09000566

PATIENT
  Age: 58 Year
  Sex: Female

DRUGS (4)
  1. RISEDRONATE SODIUM [Suspect]
     Indication: OSTEOPOROSIS
     Dosage: 17.5MG ONE DOSE ONLY, ORAL
     Route: 048
     Dates: start: 20090219, end: 20090219
  2. MYONAL /00287502/ (EPIRIZOLE HYDROCHLORIDE) [Concomitant]
  3. OPALMON (LIMAPROST) [Concomitant]
  4. WARKMIN (ALFACALCIDOL) [Concomitant]

REACTIONS (6)
  - DYSPHONIA [None]
  - DYSPNOEA [None]
  - INITIAL INSOMNIA [None]
  - OROPHARYNGEAL PAIN [None]
  - OROPHARYNGEAL SWELLING [None]
  - SENSATION OF FOREIGN BODY [None]
